FAERS Safety Report 8523803-0 (Version None)
Quarter: 2012Q3

REPORT INFORMATION
  Report Type: 
  Country: None (occurrence: None)
  Receive Date: 20120720
  Receipt Date: 20120713
  Transmission Date: 20120928
  Serious: Yes (Hospitalization)
  Sender: FDA-Public Use
  Company Number: US-JNJFOC-20120512767

PATIENT
  Age: 38 Year
  Sex: Female
  Weight: 89.7 kg

DRUGS (4)
  1. ACETAMINOPHEN [Suspect]
     Route: 048
  2. ACETAMINOPHEN [Suspect]
     Indication: PRODUCT USED FOR UNKNOWN INDICATION
     Route: 048
  3. CYCLOBENZAPRINE [Suspect]
     Indication: PRODUCT USED FOR UNKNOWN INDICATION
     Route: 048
  4. CITALOPRAM HYDROBROMIDE [Concomitant]

REACTIONS (5)
  - AGITATION [None]
  - MULTIPLE DRUG OVERDOSE [None]
  - TACHYCARDIA [None]
  - LETHARGY [None]
  - HEPATIC ENZYME INCREASED [None]
